FAERS Safety Report 17438426 (Version 1)
Quarter: 2020Q1

REPORT INFORMATION
  Report Type: Spontaneous
  Country: FR (occurrence: FR)
  Receive Date: 20200220
  Receipt Date: 20200220
  Transmission Date: 20200409
  Serious: Yes (Death)
  Sender: FDA-Public Use
  Company Number: FR-ROCHE-2550145

PATIENT
  Age: 48 Year
  Sex: Female
  Weight: 58 kg

DRUGS (10)
  1. VALACYCLOVIR [Concomitant]
     Active Substance: VALACYCLOVIR HYDROCHLORIDE
     Indication: ANTIVIRAL PROPHYLAXIS
     Route: 048
  2. BACTRIM [Concomitant]
     Active Substance: SULFAMETHOXAZOLE\TRIMETHOPRIM
     Indication: ANTIBIOTIC PROPHYLAXIS
     Route: 048
  3. MIDAZOLAM MYLAN [Concomitant]
     Active Substance: MIDAZOLAM HYDROCHLORIDE
     Indication: SEDATIVE THERAPY
     Route: 042
     Dates: start: 20190916
  4. MABTHERA [Suspect]
     Active Substance: RITUXIMAB
     Indication: CENTRAL NERVOUS SYSTEM LYMPHOMA
     Route: 041
     Dates: start: 20190914, end: 20190914
  5. METHOTREXATE. [Suspect]
     Active Substance: METHOTREXATE
     Indication: CENTRAL NERVOUS SYSTEM LYMPHOMA
     Route: 042
     Dates: start: 20190914, end: 20190914
  6. SEROPLEX [Concomitant]
     Active Substance: ESCITALOPRAM OXALATE
     Indication: DEPRESSION
     Route: 048
  7. SUFENTANIL [Concomitant]
     Active Substance: SUFENTANIL
     Indication: SEDATIVE THERAPY
     Route: 042
     Dates: start: 20190916
  8. DIPRIVAN [Concomitant]
     Active Substance: PROPOFOL
     Indication: SEDATIVE THERAPY
     Route: 042
     Dates: start: 20190916
  9. LEDERFOLINE [Concomitant]
     Active Substance: LEUCOVORIN CALCIUM
     Indication: VITAMIN SUPPLEMENTATION
     Route: 042
  10. ZARZIO [Concomitant]
     Active Substance: FILGRASTIM
     Indication: CHEMOTHERAPY CYTOKINE PROPHYLAXIS
     Route: 058

REACTIONS (4)
  - Shock haemorrhagic [Fatal]
  - Septic shock [Fatal]
  - Fungal endocarditis [Fatal]
  - Lung disorder [Fatal]

NARRATIVE: CASE EVENT DATE: 20190925
